FAERS Safety Report 8345425-7 (Version None)
Quarter: 2012Q2

REPORT INFORMATION
  Report Type: 
  Country: None (occurrence: None)
  Receive Date: 20120508
  Receipt Date: 20120412
  Transmission Date: 20120825
  Serious: Yes (Hospitalization, Other)
  Sender: FDA-Public Use
  Company Number: US-BAXTER-2012BH005493

PATIENT
  Sex: Female
  Weight: 119.4 kg

DRUGS (23)
  1. POTASSIUM CHLORIDE [Concomitant]
     Route: 065
  2. EFFEXOR [Concomitant]
     Route: 065
  3. LYRICA [Concomitant]
     Route: 065
  4. ZANAFLEX [Concomitant]
     Route: 065
  5. PATADAY EYE GTS [Concomitant]
     Route: 047
  6. DEPAKOTE [Concomitant]
     Dosage: 2 TSP/250MG/5ML
     Route: 065
  7. ESTROGEL [Concomitant]
     Dosage: 1 PUMP
     Route: 065
  8. RESTASIS [Concomitant]
     Route: 047
  9. MIRAPEX [Concomitant]
     Route: 065
  10. LOMOTIL [Concomitant]
     Route: 065
  11. GLUCOSAMINE/CHONDROITIN [Concomitant]
     Route: 065
  12. SYNTHROID [Concomitant]
     Route: 065
  13. HYDROCHLOROTHIAZIDE [Concomitant]
     Route: 065
  14. CLONIDINE [Concomitant]
     Route: 065
  15. ROZEREM [Concomitant]
     Route: 065
  16. COMBIVENT [Concomitant]
     Dosage: 2 PUFFS
  17. XOPENEX NEBS [Concomitant]
  18. SODIUM CHLORIDE INJ [Suspect]
     Route: 042
     Dates: start: 20120215
  19. SODIUM CHLORIDE INJ [Suspect]
     Route: 042
     Dates: start: 20120215
  20. BENTYL [Concomitant]
     Route: 065
  21. VITAMIN D [Concomitant]
     Route: 065
  22. PRILOSEC [Concomitant]
     Route: 065
  23. AMITREX [Concomitant]
     Route: 065

REACTIONS (1)
  - HYPERSENSITIVITY [None]
